FAERS Safety Report 25200879 (Version 1)
Quarter: 2025Q2

REPORT INFORMATION
  Report Type: Other
  Country: BG (occurrence: None)
  Receive Date: 20250415
  Receipt Date: 20250415
  Transmission Date: 20250716
  Serious: Yes (Hospitalization, Other)
  Sender: SQUARE PHARMACEUTICALS
  Company Number: BG-Square Pharmaceuticals PLC-000062

PATIENT
  Age: 74 Year
  Sex: Male

DRUGS (3)
  1. VALSARTAN [Suspect]
     Active Substance: VALSARTAN
     Indication: Hypertension
     Dosage: 160 MG TWICE DAILY
     Dates: start: 2019
  2. LERCANIDIPINE HYDROCHLORIDE [Concomitant]
     Active Substance: LERCANIDIPINE HYDROCHLORIDE
     Indication: Hypertension
     Dosage: 10 MG ONCE DAILY SINCE 2019
     Dates: start: 2019
  3. ROSUVASTATIN [Concomitant]
     Active Substance: ROSUVASTATIN
     Indication: Hypertension
     Dosage: 5 MG ONCE DAILY
     Dates: start: 2024

REACTIONS (1)
  - Nodular melanoma [Recovered/Resolved]
